FAERS Safety Report 14247875 (Version 13)
Quarter: 2019Q4

REPORT INFORMATION
  Report Type: Report from Study
  Country: BE (occurrence: BE)
  Receive Date: 20171204
  Receipt Date: 20191111
  Transmission Date: 20200122
  Serious: Yes (Death, Hospitalization)
  Sender: FDA-Public Use
  Company Number: BE-ROCHE-2032554

PATIENT
  Age: 77 Year
  Sex: Male
  Weight: 67 kg

DRUGS (28)
  1. VEMURAFENIB. [Suspect]
     Active Substance: VEMURAFENIB
     Indication: MALIGNANT MELANOMA
     Dosage: ON 24/NOV/2017, THE PATIENT RECEIVED MOST RECENT DOSE OF VEMURAFENIB AT 4 TABLETS.
     Route: 048
     Dates: start: 20170803
  2. PANTOMED [PANTOPRAZOLE SODIUM SESQUIHYDRATE] [Concomitant]
     Active Substance: PANTOPRAZOLE SODIUM
     Route: 065
     Dates: start: 20171126, end: 20171206
  3. IBUPROFEN. [Concomitant]
     Active Substance: IBUPROFEN
     Indication: BLOOD CREATINE PHOSPHOKINASE INCREASED
     Route: 048
     Dates: start: 20170914
  4. MEDROL [Concomitant]
     Active Substance: METHYLPREDNISOLONE
     Indication: ALANINE AMINOTRANSFERASE INCREASED
     Route: 048
     Dates: start: 20171019, end: 20171026
  5. NEORAL SANDIMMUN [Concomitant]
     Active Substance: CYCLOSPORINE
     Indication: IMMUNOSUPPRESSION
     Route: 065
     Dates: start: 20171130, end: 20171130
  6. AMOXICLAV [Concomitant]
     Active Substance: AMOXICILLIN\CLAVULANATE POTASSIUM
     Indication: SEPSIS
     Route: 065
     Dates: start: 20171128, end: 20171129
  7. SOLU-CORTEF [Concomitant]
     Active Substance: HYDROCORTISONE SODIUM SUCCINATE
     Route: 042
     Dates: start: 20171201, end: 20171201
  8. BURINEX [Concomitant]
     Active Substance: BUMETANIDE
     Indication: OEDEMA
     Route: 048
     Dates: start: 20170823
  9. LUMIGAN [Concomitant]
     Active Substance: BIMATOPROST
     Indication: GLAUCOMA
     Dosage: DOSE: 1 UNIT.
     Route: 050
     Dates: start: 20170724
  10. MEDROL [Concomitant]
     Active Substance: METHYLPREDNISOLONE
     Route: 048
     Dates: start: 20171116, end: 20171127
  11. MEDROL [Concomitant]
     Active Substance: METHYLPREDNISOLONE
     Route: 048
     Dates: start: 20171127, end: 20171127
  12. MEDROL [Concomitant]
     Active Substance: METHYLPREDNISOLONE
     Route: 048
     Dates: start: 20171128, end: 20171128
  13. MEDROL [Concomitant]
     Active Substance: METHYLPREDNISOLONE
     Route: 048
     Dates: start: 20171130, end: 20171201
  14. CLEXANE [Concomitant]
     Active Substance: ENOXAPARIN SODIUM
     Indication: THROMBOSIS PROPHYLAXIS
     Route: 065
     Dates: start: 20171201, end: 20171206
  15. HYPNOMIDATE [ETOMIDATE] [Concomitant]
     Indication: ANAESTHESIA
     Route: 065
     Dates: start: 20171201, end: 20171201
  16. KALIUMCHLORIDE [Concomitant]
     Route: 065
     Dates: start: 20171201, end: 20171202
  17. ELOCOM [Concomitant]
     Active Substance: MOMETASONE FUROATE
     Indication: DERMATITIS ACNEIFORM
     Dosage: DOSE: 1 UNIT
     Route: 061
     Dates: start: 20170817
  18. MEDROL [Concomitant]
     Active Substance: METHYLPREDNISOLONE
     Route: 048
     Dates: start: 20171129, end: 20171129
  19. LITICAN [ALIZAPRIDE HYDROCHLORIDE] [Concomitant]
     Indication: NAUSEA
     Route: 065
     Dates: start: 20171130, end: 20171130
  20. MEDROL [Concomitant]
     Active Substance: METHYLPREDNISOLONE
     Indication: ASPARTATE AMINOTRANSFERASE INCREASED
     Route: 048
     Dates: start: 20171026, end: 20171109
  21. DAFALGAN [Concomitant]
     Active Substance: ACETAMINOPHEN
     Indication: PAIN
     Route: 065
     Dates: start: 20171126, end: 20171128
  22. SOLU-CORTEF [Concomitant]
     Active Substance: HYDROCORTISONE SODIUM SUCCINATE
     Route: 042
     Dates: start: 20171203, end: 20171203
  23. COBIMETINIB. [Suspect]
     Active Substance: COBIMETINIB
     Indication: MALIGNANT MELANOMA
     Dosage: ON DAYS 1 TO 21 OF 28 DAY CYCLE?ON 24/NOV/2017, THE PATIENT RECEVIED MOST RECENT DOSE OF COBIMETINIB
     Route: 048
     Dates: start: 20170803
  24. BLINDED ATEZOLIZUMAB [Suspect]
     Active Substance: ATEZOLIZUMAB
     Indication: MALIGNANT MELANOMA
     Dosage: ON 14/SEP/2017, THE PATIENT RECEIVED MOST RECENT DOSE OF BLINDED ATEZOLIZUMAB.
     Route: 042
     Dates: start: 20170831
  25. COVERAM [Concomitant]
     Active Substance: AMLODIPINE\PERINDOPRIL
     Indication: HYPERTENSION
     Route: 048
     Dates: start: 20170803
  26. MEDROL [Concomitant]
     Active Substance: METHYLPREDNISOLONE
     Route: 048
     Dates: start: 20171109, end: 20171116
  27. FENTANYL. [Concomitant]
     Active Substance: FENTANYL
     Indication: ANAESTHESIA
     Route: 065
     Dates: start: 20171201, end: 20171206
  28. KALIUMCHLORIDE [Concomitant]
     Route: 065
     Dates: start: 20171204, end: 20171205

REACTIONS (2)
  - Sepsis [Fatal]
  - Muscular weakness [Not Recovered/Not Resolved]

NARRATIVE: CASE EVENT DATE: 20171126
